FAERS Safety Report 7443230-7 (Version None)
Quarter: 2011Q2

REPORT INFORMATION
  Report Type: 
  Country: None (occurrence: None)
  Receive Date: 20110428
  Receipt Date: 20110419
  Transmission Date: 20111010
  Serious: Yes (Hospitalization)
  Sender: FDA-Public Use
  Company Number: B0714887A

PATIENT
  Sex: Female
  Weight: 45 kg

DRUGS (4)
  1. TYKERB [Suspect]
     Indication: BREAST CANCER
     Dosage: 1250MG PER DAY
     Route: 048
     Dates: start: 20090806, end: 20090920
  2. TYKERB [Suspect]
     Dosage: 1250MG PER DAY
     Route: 048
     Dates: start: 20091007, end: 20091110
  3. XELODA [Concomitant]
     Dosage: 1500MG PER DAY
     Route: 048
     Dates: start: 20091007, end: 20091110
  4. XELODA [Concomitant]
     Dosage: 1500MG PER DAY
     Route: 048
     Dates: start: 20090806, end: 20090920

REACTIONS (2)
  - MALAISE [None]
  - DECREASED APPETITE [None]
